FAERS Safety Report 11641695 (Version 1)
Quarter: 2015Q4

REPORT INFORMATION
  Report Type: Spontaneous
  Country: US (occurrence: US)
  Receive Date: 20151019
  Receipt Date: 20151019
  Transmission Date: 20160304
  Serious: No
  Sender: FDA-Public Use
  Company Number: US-DEP_07563_2015

PATIENT
  Age: 58 Year
  Sex: Female

DRUGS (1)
  1. NUCYNTA ER [Suspect]
     Active Substance: TAPENTADOL HYDROCHLORIDE
     Indication: PAIN
     Dosage: 200 MG, EVERY 12 HRS
     Route: 048
     Dates: start: 201309

REACTIONS (3)
  - Poor quality drug administered [Unknown]
  - Product contamination [Unknown]
  - Product quality issue [Unknown]

NARRATIVE: CASE EVENT DATE: 20140710
